FAERS Safety Report 6928986-1 (Version None)
Quarter: 2010Q3

REPORT INFORMATION
  Report Type: 
  Country: None (occurrence: None)
  Receive Date: 20100817
  Receipt Date: 20100809
  Transmission Date: 20110219
  Serious: Yes (Hospitalization)
  Sender: FDA-Public Use
  Company Number: US-ENDO PHARMACEUTICALS INC.-PERC20100081

PATIENT
  Sex: Male
  Weight: 93.6 kg

DRUGS (14)
  1. PERCOCET [Suspect]
     Indication: PAIN
     Dosage: 5/325 MG
     Route: 048
     Dates: start: 20090922, end: 20091002
  2. LEVODOPA-CARBIDOPA INTESTINAL GEL [Suspect]
     Indication: PARKINSON'S DISEASE
     Dosage: 5/20 MG/ML
     Route: 065
     Dates: start: 20090914, end: 20090921
  3. LEVODOPA-CARBIDOPA INTESTINAL GEL [Suspect]
     Indication: ON AND OFF PHENOMENON
     Dosage: 5/20 MG/ML
     Route: 065
     Dates: start: 20090921
  4. DILAUDID [Suspect]
     Indication: PAIN
     Dosage: 0.2 MG
     Dates: start: 20090921, end: 20090922
  5. DILAUDID [Suspect]
     Dosage: 0.4 MG
     Dates: start: 20090922, end: 20090922
  6. MS CONTIN [Suspect]
     Indication: PAIN
     Dosage: 15 MG
     Route: 048
     Dates: start: 20090923, end: 20090924
  7. CLONAZEPAM [Concomitant]
     Indication: PRODUCT USED FOR UNKNOWN INDICATION
     Dates: start: 20090913, end: 20090923
  8. HALDOL [Concomitant]
     Indication: PRODUCT USED FOR UNKNOWN INDICATION
     Dosage: 10 MG
  9. HEPARIN [Concomitant]
     Indication: PRODUCT USED FOR UNKNOWN INDICATION
     Dosage: 5000 UNITS
  10. METHYLNALTREXONE [Concomitant]
     Indication: PRODUCT USED FOR UNKNOWN INDICATION
     Dosage: 12 MG
  11. SERTALINE [Concomitant]
     Indication: PRODUCT USED FOR UNKNOWN INDICATION
     Dosage: 100 MG
  12. SIMVASTATIN [Concomitant]
     Indication: PRODUCT USED FOR UNKNOWN INDICATION
     Dosage: 20 MG
  13. LORAZEPAM [Concomitant]
     Indication: PRODUCT USED FOR UNKNOWN INDICATION
     Dosage: 1 MG
  14. DIPHENHYDRAMINE [Concomitant]
     Indication: PRODUCT USED FOR UNKNOWN INDICATION
     Dosage: 25 MG

REACTIONS (5)
  - DEHYDRATION [None]
  - ILEUS PARALYTIC [None]
  - PNEUMONIA [None]
  - TOXIC ENCEPHALOPATHY [None]
  - VOMITING [None]
